FAERS Safety Report 18724418 (Version 1)
Quarter: 2021Q1

REPORT INFORMATION
  Report Type: Spontaneous
  Country: US (occurrence: US)
  Receive Date: 20210111
  Receipt Date: 20210111
  Transmission Date: 20210419
  Serious: No
  Sender: FDA-Public Use
  Company Number: US-PFIZER INC-2021005810

PATIENT
  Sex: Female

DRUGS (2)
  1. CYTOTEC [Suspect]
     Active Substance: MISOPROSTOL
     Dosage: 600 UG (3X200MCG 360 TABLETS SUPPLY)
  2. CYTOTEC [Suspect]
     Active Substance: MISOPROSTOL
     Dosage: 100 UG

REACTIONS (4)
  - Illness [Unknown]
  - Drug ineffective [Unknown]
  - Product quality issue [Unknown]
  - Poor quality product administered [Unknown]
